FAERS Safety Report 6271990-X (Version None)
Quarter: 2009Q3

REPORT INFORMATION
  Report Type: 
  Country: None (occurrence: None)
  Receive Date: 20090715
  Receipt Date: 20090707
  Transmission Date: 20100115
  Serious: Yes (Other)
  Sender: FDA-Public Use
  Company Number: SPV1-2009-01419

PATIENT
  Age: 51 Year
  Sex: Female
  Weight: 61.2 kg

DRUGS (4)
  1. ADDERALL 10 [Suspect]
     Indication: ATTENTION DEFICIT/HYPERACTIVITY DISORDER
     Dosage: 30 MG, 1X/DAY:QD, ORAL; 30 MG, AS REQ'D,; 30 MG, 2X/DAY:BID, ORAL
     Route: 048
     Dates: start: 20050601, end: 20070101
  2. ADDERALL 10 [Suspect]
     Indication: ATTENTION DEFICIT/HYPERACTIVITY DISORDER
     Dosage: 30 MG, 1X/DAY:QD, ORAL; 30 MG, AS REQ'D,; 30 MG, 2X/DAY:BID, ORAL
     Route: 048
     Dates: start: 20070101, end: 20090601
  3. ADDERALL 10 [Suspect]
     Indication: ATTENTION DEFICIT/HYPERACTIVITY DISORDER
     Dosage: 30 MG, 1X/DAY:QD, ORAL; 30 MG, AS REQ'D,; 30 MG, 2X/DAY:BID, ORAL
     Route: 048
     Dates: start: 20070101, end: 20090601
  4. HYDROCHLOROTHIAZIDE [Concomitant]

REACTIONS (14)
  - ARTHRITIS [None]
  - CARPAL TUNNEL SYNDROME [None]
  - DRUG INEFFECTIVE [None]
  - DRUG TOLERANCE [None]
  - INAPPROPRIATE SCHEDULE OF DRUG ADMINISTRATION [None]
  - INCREASED APPETITE [None]
  - INSOMNIA [None]
  - INTERVERTEBRAL DISC DEGENERATION [None]
  - NECK PAIN [None]
  - NEURALGIA [None]
  - ROAD TRAFFIC ACCIDENT [None]
  - SOMNOLENCE [None]
  - WEIGHT INCREASED [None]
  - WHIPLASH INJURY [None]
